FAERS Safety Report 9766675 (Version 1)
Quarter: 2013Q4

REPORT INFORMATION
  Report Type: Spontaneous
  Country: US (occurrence: US)
  Receive Date: 20131217
  Receipt Date: 20131217
  Transmission Date: 20140711
  Serious: No
  Sender: FDA-Public Use
  Company Number: US-BIOGENIDEC-2013BI117716

PATIENT
  Age: 60 Year
  Sex: Male

DRUGS (10)
  1. TECFIDERA [Suspect]
     Indication: MULTIPLE SCLEROSIS
     Route: 048
     Dates: start: 201308
  2. KLONOPIN [Concomitant]
  3. CHANTIX [Concomitant]
  4. GABAPENTIN [Concomitant]
  5. PAXIL [Concomitant]
  6. BACLOFEN [Concomitant]
  7. OXYBUTYNIN [Concomitant]
  8. OXYCONTIN [Concomitant]
  9. ATIVAN [Concomitant]
  10. VITAMIN D [Concomitant]

REACTIONS (2)
  - Urinary incontinence [Not Recovered/Not Resolved]
  - Diarrhoea [Recovered/Resolved]
